FAERS Safety Report 23056176 (Version 1)
Quarter: 2023Q4

REPORT INFORMATION
  Report Type: Spontaneous
  Country: BE (occurrence: BE)
  Receive Date: 20231011
  Receipt Date: 20231011
  Transmission Date: 20240109
  Serious: Yes (Other)
  Sender: FDA-Public Use
  Company Number: BE-Merck Healthcare KGaA-2023477301

PATIENT
  Age: 36 Year
  Sex: Female
  Weight: 104 kg

DRUGS (3)
  1. METFORMIN [Suspect]
     Active Substance: METFORMIN HYDROCHLORIDE
     Indication: Type 2 diabetes mellitus
     Dosage: 850 MILLIGRAM, TID
     Route: 048
  2. INSULIN NOS [Suspect]
     Active Substance: INSULIN NOS
     Indication: Type 2 diabetes mellitus
     Dosage: RRPID-ACTING INSULIN 6-6-6IU/DAY AND BASAL
     Route: 065
  3. RYBELSUS [Suspect]
     Active Substance: SEMAGLUTIDE
     Indication: Type 2 diabetes mellitus
     Dosage: UNK
     Route: 048

REACTIONS (5)
  - Dilated cardiomyopathy [Unknown]
  - Diabetes mellitus inadequate control [Recovering/Resolving]
  - Weight increased [Recovering/Resolving]
  - Drug intolerance [Unknown]
  - Wrong technique in product usage process [Unknown]
